FAERS Safety Report 4753276-5 (Version None)
Quarter: 2005Q3

REPORT INFORMATION
  Report Type: 
  Country: None (occurrence: None)
  Receive Date: 20050826
  Receipt Date: 20050815
  Transmission Date: 20060218
  Serious: Yes (Other)
  Sender: FDA-Public Use
  Company Number: GB-BRISTOL-MYERS SQUIBB COMPANY-13077979

PATIENT
  Age: 67 Year
  Sex: Male

DRUGS (3)
  1. TRIAMCINOLONE [Suspect]
     Indication: DIABETIC RETINAL OEDEMA
     Dosage: DOSAGE: 4 MG/0.1 ML
     Route: 031
  2. ATORVASTATIN [Concomitant]
     Indication: DYSLIPIDAEMIA
  3. WARFARIN [Concomitant]
     Indication: AORTIC VALVE REPLACEMENT

REACTIONS (1)
  - CONJUNCTIVAL HAEMORRHAGE [None]
